FAERS Safety Report 5176468-2 (Version None)
Quarter: 2006Q4

REPORT INFORMATION
  Report Type: 
  Country: None (occurrence: None)
  Receive Date: 20061207
  Receipt Date: 20061122
  Transmission Date: 20070319
  Serious: Yes (Hospitalization)
  Sender: FDA-Public Use
  Company Number: 8020474

PATIENT
  Age: 15 Year
  Sex: Female
  Weight: 52 kg

DRUGS (1)
  1. KEPPRA [Suspect]
     Indication: EPILEPSY
     Dosage: 500 MG 2/D PO
     Route: 048

REACTIONS (4)
  - ANGIONEUROTIC OEDEMA [None]
  - EPSTEIN-BARR VIRUS INFECTION [None]
  - EYELID OEDEMA [None]
  - FACE OEDEMA [None]
